FAERS Safety Report 19411106 (Version 1)
Quarter: 2021Q2

REPORT INFORMATION
  Report Type: Spontaneous
  Country: US (occurrence: US)
  Receive Date: 20210614
  Receipt Date: 20210614
  Transmission Date: 20210717
  Serious: No
  Sender: FDA-Public Use
  Company Number: None

PATIENT
  Sex: Female

DRUGS (17)
  1. GABAPENTIN 300 MG CAP [Concomitant]
     Active Substance: GABAPENTIN
  2. LEVOTHYROXINE 100 MG TAB [Concomitant]
  3. PROMETHAZINE 25 MG TAB [Concomitant]
  4. IBRANCE [Suspect]
     Active Substance: PALBOCICLIB
     Indication: BREAST CANCER
  5. NOVOLOG [Concomitant]
     Active Substance: INSULIN ASPART
  6. ONDANSETRON 8 MG TAB [Concomitant]
  7. ALBUTEROL. [Concomitant]
     Active Substance: ALBUTEROL
  8. ASPIRIN 81 MG TAB [Concomitant]
  9. TRAZODONE 50 MG TAB [Concomitant]
  10. ATORVASTATIN 40 MG TAB [Concomitant]
  11. NATEGLINIDE 120 MG TAB [Concomitant]
  12. LETROZOLE. [Suspect]
     Active Substance: LETROZOLE
     Indication: BREAST CANCER
  13. FUROSEMIDE 20 MG TAB [Concomitant]
  14. LYRICA 50 MG CAP [Concomitant]
  15. HYDRALAZINE 25 MG TAB [Concomitant]
  16. TRESIBA 100 [Concomitant]
  17. VITAMIN 1.25 MG CAP [Concomitant]

REACTIONS (1)
  - Disease progression [None]
